FAERS Safety Report 6967701-2 (Version None)
Quarter: 2010Q3

REPORT INFORMATION
  Report Type: 
  Country: None (occurrence: None)
  Receive Date: 20100907
  Receipt Date: 20100824
  Transmission Date: 20110219
  Serious: No
  Sender: FDA-Public Use
  Company Number: US-PFIZER INC-2010082693

PATIENT
  Sex: Female

DRUGS (4)
  1. LYRICA [Suspect]
     Indication: NEURALGIA
     Dosage: 75 MG, 3X/DAY
     Route: 048
     Dates: start: 20071017, end: 20100601
  2. OXYMORPHONE [Concomitant]
     Dosage: 20 MG, 2X/DAY
  3. VICODIN [Concomitant]
     Dosage: 7.5/750, EVERY 4 HOURS
  4. NAPROSYN [Concomitant]
     Dosage: 550 MG, 2X/DAY

REACTIONS (3)
  - BREAST DISCHARGE [None]
  - BREAST SWELLING [None]
  - BREAST TENDERNESS [None]
